FAERS Safety Report 4923495-3 (Version None)
Quarter: 2006Q1

REPORT INFORMATION
  Report Type: 
  Country: None (occurrence: None)
  Receive Date: 20060227
  Receipt Date: 20060202
  Transmission Date: 20060701
  Serious: Yes (Other)
  Sender: FDA-Public Use
  Company Number: PHEH2006US01634

PATIENT
  Age: 81 Year
  Sex: Male
  Weight: 88.888 kg

DRUGS (6)
  1. ZOMETA [Suspect]
     Indication: MULTIPLE MYELOMA
     Dosage: 4 MG MONTHLY
     Dates: start: 20040304, end: 20051208
  2. VELCADE [Concomitant]
  3. ARANESP [Concomitant]
  4. KYTRIL [Concomitant]
  5. DEXAMETHASONE SODIUM PHOSPHATE [Concomitant]
     Indication: MULTIPLE MYELOMA
     Dates: start: 20040301, end: 20051001
  6. THALIDOMIDE [Concomitant]
     Indication: MULTIPLE MYELOMA
     Dosage: 100 MG, QD
     Dates: start: 20040301, end: 20051001

REACTIONS (16)
  - AORTIC ANEURYSM [None]
  - BONE DEBRIDEMENT [None]
  - BONE DISORDER [None]
  - BONE LESION [None]
  - DENTAL TREATMENT [None]
  - ERYTHEMA [None]
  - IMPAIRED HEALING [None]
  - LOCAL SWELLING [None]
  - ORAL PAIN [None]
  - OSTEOMYELITIS [None]
  - OSTEONECROSIS [None]
  - PAIN IN JAW [None]
  - PURULENT DISCHARGE [None]
  - SOFT TISSUE INFECTION [None]
  - TOOTH EXTRACTION [None]
  - TOOTHACHE [None]
